FAERS Safety Report 21444394 (Version 1)
Quarter: 2022Q4

REPORT INFORMATION
  Report Type: Report from Study
  Country: EG (occurrence: EG)
  Receive Date: 20221012
  Receipt Date: 20221012
  Transmission Date: 20230113
  Serious: Yes (Other)
  Sender: FDA-Public Use
  Company Number: EG-NOVARTISPH-NVSC2022EG219758

PATIENT
  Age: 12 Year
  Sex: Male

DRUGS (15)
  1. MYFORTIC [Suspect]
     Active Substance: MYCOPHENOLATE SODIUM
     Indication: Prophylaxis against transplant rejection
     Dosage: 3 DOSAGE FORM, QD
     Route: 065
     Dates: start: 20220826
  2. PROGRAF [Concomitant]
     Active Substance: TACROLIMUS
     Indication: Kidney transplant rejection
     Dosage: UNK  5 CAPSULES IN THE MORNING AND  4 CAPSULES AT NIGHT
     Route: 048
     Dates: start: 20220826
  3. SOLUPRED [Concomitant]
     Indication: Product used for unknown indication
     Dosage: 3 DOSAGE FORM, QD
     Route: 048
     Dates: start: 20220828
  4. SOLUPRED [Concomitant]
     Dosage: 2 DOSAGE FORM, QD
     Route: 048
  5. SOLUPRED [Concomitant]
     Dosage: 1 DOSAGE FORM, QD
     Route: 048
  6. SOLUPRED [Concomitant]
     Dosage: 10 MG, QD
     Route: 048
  7. CONTROLOC [Concomitant]
     Active Substance: PANTOPRAZOLE SODIUM
     Indication: Gastrointestinal disorder
     Dosage: 40 MG
     Route: 048
     Dates: start: 20220828
  8. CONTROLOC [Concomitant]
     Active Substance: PANTOPRAZOLE SODIUM
     Dosage: 20 MG, QD
     Route: 048
  9. REPAGLINIDE [Concomitant]
     Active Substance: REPAGLINIDE
     Indication: Hyperglycaemia
     Dosage: 3 DOSAGE FORM, QD
     Route: 048
     Dates: start: 20220905
  10. LANTUS [Concomitant]
     Active Substance: INSULIN GLARGINE
     Indication: Hyperglycaemia
     Dosage: UNK (22 UNITS)
     Route: 065
     Dates: start: 20220906
  11. VILDAGLIPTIN [Concomitant]
     Active Substance: VILDAGLIPTIN
     Indication: Hyperglycaemia
     Dosage: 2 DOSAGE FORM, QD AFTER LUNCH
     Route: 048
     Dates: start: 20220915
  12. ACYCLOVIR [Concomitant]
     Active Substance: ACYCLOVIR
     Indication: Viral infection
     Dosage: 1 DOSAGE FORM, QD
     Route: 048
     Dates: start: 20220905
  13. SULFAMETHOXAZOLE\TRIMETHOPRIM [Concomitant]
     Active Substance: SULFAMETHOXAZOLE\TRIMETHOPRIM
     Indication: Bacterial infection
     Dosage: 0.5 DOSAGE FORM, QD
     Route: 048
     Dates: start: 20220829
  14. MYCOSTATIN [Concomitant]
     Active Substance: NYSTATIN
     Indication: Fungal infection
     Dosage: UNK, TID
     Route: 048
     Dates: start: 20220828
  15. EPREX [Concomitant]
     Active Substance: ERYTHROPOIETIN
     Indication: Haemoglobin decreased
     Dosage: UNK, QW
     Route: 065
     Dates: start: 201005

REACTIONS (3)
  - New onset diabetes after transplantation [Not Recovered/Not Resolved]
  - Haemoglobin decreased [Not Recovered/Not Resolved]
  - Off label use [Not Recovered/Not Resolved]

NARRATIVE: CASE EVENT DATE: 20220826
